FAERS Safety Report 6371076-X (Version None)
Quarter: 2009Q3

REPORT INFORMATION
  Report Type: 
  Country: None (occurrence: None)
  Receive Date: 20090923
  Receipt Date: 20090910
  Transmission Date: 20100115
  Serious: Yes (Other)
  Sender: FDA-Public Use
  Company Number: PHEH2009US11283

PATIENT
  Sex: Female

DRUGS (5)
  1. ZOMETA [Suspect]
     Indication: BREAST CANCER METASTATIC
     Dosage: 4 UNK, ONCE/SINGLE
     Route: 042
     Dates: start: 20090808, end: 20090808
  2. ZOMETA [Suspect]
     Indication: METASTASES TO BONE
     Dosage: 2 MG, ONCE/SINGLE
     Dates: start: 20090904, end: 20090904
  3. ARIMIDEX [Concomitant]
  4. CALCIUM [Concomitant]
  5. VITAMIN D [Concomitant]

REACTIONS (1)
  - EYE SWELLING [None]
